FAERS Safety Report 5809486-9 (Version None)
Quarter: 2008Q3

REPORT INFORMATION
  Report Type: 
  Country: None (occurrence: None)
  Receive Date: 20080709
  Receipt Date: 20080624
  Transmission Date: 20090109
  Serious: Yes (Death)
  Sender: FDA-Public Use
  Company Number: 2008S1011474

PATIENT
  Age: 53 Year
  Sex: Female

DRUGS (2)
  1. WARFARIN SODIUM [Suspect]
     Indication: AORTIC THROMBOSIS
  2. HEPARIN [Suspect]
     Indication: AORTIC THROMBOSIS

REACTIONS (4)
  - COMA [None]
  - CONVULSION [None]
  - HAEMORRHAGIC STROKE [None]
  - POSTURING [None]
